FAERS Safety Report 5223825-1 (Version None)
Quarter: 2007Q1

REPORT INFORMATION
  Report Type: 
  Country: None (occurrence: None)
  Receive Date: 20070130
  Receipt Date: 20070119
  Transmission Date: 20070707
  Serious: Yes (Other)
  Sender: FDA-Public Use
  Company Number: PHEH2007US01091

PATIENT
  Age: 60 Year
  Sex: Male
  Weight: 95.238 kg

DRUGS (3)
  1. ZOMETA [Suspect]
     Indication: METASTASES TO BONE
     Dosage: 4MG QMO
     Route: 042
     Dates: start: 20060707
  2. ZOMETA [Suspect]
     Dosage: UNK Q8WK
  3. ERBITUX [Concomitant]

REACTIONS (1)
  - OSTEONECROSIS [None]
